FAERS Safety Report 10184784 (Version 2)
Quarter: 2014Q2

REPORT INFORMATION
  Report Type: Spontaneous
  Country: FR (occurrence: FR)
  Receive Date: 20140521
  Receipt Date: 20140521
  Transmission Date: 20141212
  Serious: Yes (Other)
  Sender: FDA-Public Use
  Company Number: PHHY2013FR072299

PATIENT
  Age: 85 Year
  Sex: Male

DRUGS (4)
  1. EXELON PATCH [Suspect]
     Indication: DEMENTIA ALZHEIMER^S TYPE
     Dosage: 4.6 MG, QD
     Route: 062
     Dates: start: 20130308, end: 20130410
  2. SEROPLEX [Suspect]
     Indication: DEPRESSION
     Dosage: 5 MG, QD
     Route: 048
     Dates: start: 20130129
  3. PRADAXA [Suspect]
     Indication: RHYTHM IDIOVENTRICULAR
     Dosage: 110 MG, BID
     Route: 048
  4. DOLIPRANE [Suspect]
     Indication: PAIN
     Dosage: UNK UKN, PRN
     Route: 048

REACTIONS (2)
  - Hypersexuality [Recovered/Resolved]
  - Disinhibition [Recovered/Resolved]
